FAERS Safety Report 6956676-8 (Version None)
Quarter: 2010Q3

REPORT INFORMATION
  Report Type: 
  Country: None (occurrence: None)
  Receive Date: 20100830
  Receipt Date: 20100629
  Transmission Date: 20110219
  Serious: No
  Sender: FDA-Public Use
  Company Number: US-BAUSCH-2010BL003568

PATIENT
  Age: 61 Year
  Sex: Male

DRUGS (5)
  1. NEOMYCIN + POLYMYXIN B SULFATES + DEXAMETHASONE [Suspect]
     Indication: CONJUNCTIVITIS INFECTIVE
     Route: 047
     Dates: start: 20100601, end: 20100628
  2. TOBRAMYCIN-DEXAMETHASONE [Concomitant]
     Indication: CONJUNCTIVITIS INFECTIVE
     Route: 047
     Dates: start: 20100401, end: 20100501
  3. ANTIBIOTICS [Concomitant]
     Indication: CONJUNCTIVITIS INFECTIVE
     Route: 048
     Dates: start: 20100501, end: 20100501
  4. VIGAMOX [Concomitant]
     Indication: CONJUNCTIVITIS INFECTIVE
     Route: 047
     Dates: start: 20100501, end: 20100601
  5. REFRESH [Concomitant]
     Indication: EYE IRRITATION
     Route: 047

REACTIONS (2)
  - EYE IRRITATION [None]
  - REBOUND EFFECT [None]
